FAERS Safety Report 7288265-2 (Version None)
Quarter: 2011Q1

REPORT INFORMATION
  Report Type: 
  Country: None (occurrence: None)
  Receive Date: 20110208
  Receipt Date: 20110208
  Transmission Date: 20110831
  Serious: Yes (Life-Threatening, Hospitalization)
  Sender: FDA-Public Use
  Company Number: None

PATIENT
  Age: 67 Year
  Sex: Male
  Weight: 94 kg

DRUGS (2)
  1. SIMVASTATIN [Suspect]
     Indication: HYPERLIPIDAEMIA
     Dosage: 40 MG AT BEDTIME PO
     Route: 048
     Dates: start: 20040304, end: 20110131
  2. SIMVASTATIN [Suspect]
     Indication: THYROIDECTOMY
     Dosage: 40 MG AT BEDTIME PO
     Route: 048
     Dates: start: 20040304, end: 20110131

REACTIONS (2)
  - RHABDOMYOLYSIS [None]
  - THYROID CANCER [None]
